FAERS Safety Report 9817743 (Version 2)
Quarter: 2013Q4

REPORT INFORMATION
  Report Type: Spontaneous
  Country: US (occurrence: None)
  Receive Date: 20131223
  Receipt Date: 20131223
  Transmission Date: 20140711
  Serious: Yes (Other)
  Sender: FDA-Public Use
  Company Number: 219342

PATIENT
  Sex: Male

DRUGS (1)
  1. PICATO GEL [Suspect]
     Indication: ACTINIC KERATOSIS
     Route: 061
     Dates: start: 20121012, end: 20121014

REACTIONS (9)
  - Erythema [None]
  - Acne [None]
  - Application site vesicles [None]
  - Application site dryness [None]
  - Application site scab [None]
  - Application site pruritus [None]
  - Application site swelling [None]
  - Application site burn [None]
  - Application site pain [None]
